FAERS Safety Report 5853350-6 (Version None)
Quarter: 2008Q3

REPORT INFORMATION
  Report Type: 
  Country: None (occurrence: None)
  Receive Date: 20080820
  Receipt Date: 20071127
  Transmission Date: 20090109
  Serious: Yes (Hospitalization)
  Sender: FDA-Public Use
  Company Number: US023929

PATIENT
  Age: 65 Year
  Sex: Male

DRUGS (5)
  1. ARSENIC TRIOXIDE [Suspect]
     Indication: MYELODYSPLASTIC SYNDROME
     Dosage: INTRAVENOUS DRIP
     Route: 041
     Dates: start: 20070813, end: 20071123
  2. FUROSEMIDE [Concomitant]
  3. PANTOPRAZOLE SODIUM [Concomitant]
  4. MAGNESIUM SULFATE [Concomitant]
  5. POTASSIUM CHLORIDE [Concomitant]

REACTIONS (5)
  - ABDOMINAL PAIN UPPER [None]
  - ACUTE ABDOMEN [None]
  - HEPATIC NEOPLASM [None]
  - LIVER DISORDER [None]
  - RECTAL HAEMORRHAGE [None]
